FAERS Safety Report 25535031 (Version 3)
Quarter: 2025Q3

REPORT INFORMATION
  Report Type: Spontaneous
  Country: US (occurrence: US)
  Receive Date: 20250709
  Receipt Date: 20250819
  Transmission Date: 20251020
  Serious: Yes (Death, Hospitalization)
  Sender: TEVA
  Company Number: US-TEVA-VS-3348152

PATIENT
  Age: 55 Year
  Sex: Female

DRUGS (6)
  1. CYCLOSPORINE [Suspect]
     Active Substance: CYCLOSPORINE
     Indication: Hodgkin^s disease
     Route: 065
  2. METHYLPREDNISOLONE [Suspect]
     Active Substance: METHYLPREDNISOLONE
     Indication: Drug-induced liver injury
     Route: 042
  3. DUPILUMAB [Suspect]
     Active Substance: DUPILUMAB
     Indication: Drug reaction with eosinophilia and systemic symptoms
     Route: 065
  4. URSODIOL [Suspect]
     Active Substance: URSODIOL
     Indication: Drug-induced liver injury
     Route: 048
  5. ACETYLCYSTEINE [Concomitant]
     Active Substance: ACETYLCYSTEINE
     Indication: Drug-induced liver injury
     Route: 042
  6. PREDNISONE [Suspect]
     Active Substance: PREDNISONE
     Indication: Drug-induced liver injury
     Route: 065

REACTIONS (4)
  - Pneumonia necrotising [Fatal]
  - Drug ineffective [Fatal]
  - Septic shock [Fatal]
  - Hodgkin^s disease [Fatal]
